FAERS Safety Report 8543380-8 (Version None)
Quarter: 2012Q3

REPORT INFORMATION
  Report Type: 
  Country: None (occurrence: None)
  Receive Date: 20120727
  Receipt Date: 20120720
  Transmission Date: 20120928
  Serious: Yes (Other)
  Sender: FDA-Public Use
  Company Number: PHHY2012BR033175

PATIENT
  Sex: Female

DRUGS (5)
  1. NORIPURUM FOLICO [Concomitant]
     Indication: DIABETES MELLITUS
     Dosage: 150 MG, QD
     Route: 048
  2. LOVASTATIN [Concomitant]
     Indication: BLOOD CHOLESTEROL
     Dosage: 1 DF, QD
     Route: 048
  3. VOLTAREN [Concomitant]
     Route: 048
  4. ONBREZ [Suspect]
     Indication: BRONCHITIS
     Dosage: 150 UG, ONE CAPSULE DAILY FOR 2 YEARS
  5. VENALOT (COUMARIN) [Concomitant]
     Route: 048

REACTIONS (3)
  - VERTEBRAL WEDGING [None]
  - OEDEMA PERIPHERAL [None]
  - PROCEDURAL PAIN [None]
